FAERS Safety Report 6328273-9 (Version None)
Quarter: 2009Q3

REPORT INFORMATION
  Report Type: 
  Country: None (occurrence: None)
  Receive Date: 20090825
  Receipt Date: 20090209
  Transmission Date: 20100115
  Serious: No
  Sender: FDA-Public Use
  Company Number: US-ABBOTT-09P-163-0502833-00

PATIENT
  Sex: Female
  Weight: 85.352 kg

DRUGS (5)
  1. SYNTHROID [Suspect]
     Indication: HYPOTHYROIDISM
     Dates: start: 19890101
  2. SYNTHROID [Suspect]
     Dates: start: 20050101
  3. SYNTHROID [Suspect]
     Dates: start: 20060101
  4. SYNTHROID [Suspect]
     Dates: start: 20070101
  5. ATIVAN [Concomitant]
     Indication: FEELING JITTERY
     Dates: start: 20080101

REACTIONS (8)
  - BLOOD THYROID STIMULATING HORMONE INCREASED [None]
  - DYSPNOEA [None]
  - EAR DISCOMFORT [None]
  - FEELING JITTERY [None]
  - INSOMNIA [None]
  - NASAL POLYPS [None]
  - PALPITATIONS [None]
  - TENSION [None]
